FAERS Safety Report 4490181-6 (Version None)
Quarter: 2004Q4

REPORT INFORMATION
  Report Type: 
  Country: None (occurrence: None)
  Receive Date: 20041027
  Receipt Date: 20041018
  Transmission Date: 20050328
  Serious: Yes (Other)
  Sender: FDA-Public Use
  Company Number: 2004061921

PATIENT
  Age: 79 Year
  Sex: Male
  Weight: 66.2252 kg

DRUGS (4)
  1. LIPITOR [Suspect]
     Indication: BLOOD CHOLESTEROL INCREASED
     Dosage: 10 MG (10 MG, 1 IN 1 D), ORAL
     Route: 048
  2. FOLIC ACID [Concomitant]
  3. PYRIDOXINE HYDROCHLORIDE (PHYRIDOXINE HYDROCHLORIDE) [Concomitant]
  4. TIMOLOL MALEATE [Concomitant]

REACTIONS (3)
  - MUSCLE INJURY [None]
  - ROTATOR CUFF SYNDROME [None]
  - THERAPY NON-RESPONDER [None]
